FAERS Safety Report 16076277 (Version 1)
Quarter: 2019Q1

REPORT INFORMATION
  Report Type: Spontaneous
  Country: US (occurrence: US)
  Receive Date: 20190315
  Receipt Date: 20190315
  Transmission Date: 20190418
  Serious: No
  Sender: FDA-Public Use
  Company Number: US-PFIZER INC-2019101852

PATIENT
  Age: 67 Year
  Sex: Female
  Weight: 53.52 kg

DRUGS (2)
  1. LEVOTHYROXINE SODIUM. [Suspect]
     Active Substance: LEVOTHYROXINE SODIUM
     Dosage: 112 UG, 1X/DAY
     Route: 048
  2. LEVOTHYROXINE SODIUM. [Suspect]
     Active Substance: LEVOTHYROXINE SODIUM
     Indication: HYPOTHYROIDISM
     Dosage: UNK, 1X/DAY [TAKING HALF OF 137MCG (AROUND 67 OR 68MCG) (ONCE DAILY IN THE MORNING FOR A YEAR]
     Route: 048

REACTIONS (1)
  - Drug ineffective [Unknown]
